FAERS Safety Report 25111876 (Version 3)
Quarter: 2025Q4

REPORT INFORMATION
  Report Type: Spontaneous
  Country: EU (occurrence: EU)
  Receive Date: 20250324
  Receipt Date: 20251231
  Transmission Date: 20260118
  Serious: Yes (Hospitalization, Other)
  Sender: AUROBINDO
  Company Number: EU-002147023-NVSC2025DE033093

PATIENT
  Sex: Male

DRUGS (7)
  1. DICLOFENAC [Suspect]
     Active Substance: DICLOFENAC
     Indication: Axial spondyloarthritis
     Dosage: 150 MILLIGRAM
     Route: 065
     Dates: start: 20040909, end: 20191101
  2. DICLOFENAC [Suspect]
     Active Substance: DICLOFENAC
     Dosage: 150 MILLIGRAM
     Route: 065
     Dates: start: 20191102, end: 20200201
  3. DICLOFENAC [Suspect]
     Active Substance: DICLOFENAC
     Dosage: 150 MILLIGRAM
     Route: 065
     Dates: start: 20200701, end: 20210401
  4. DICLOFENAC [Suspect]
     Active Substance: DICLOFENAC
     Dosage: 100 MILLIGRAM 7 DAYS WEEK
     Route: 065
  5. COSENTYX [Suspect]
     Active Substance: SECUKINUMAB
     Indication: Axial spondyloarthritis
     Dosage: 150 MILLIGRAM 4 WEEK
     Route: 065
  6. COSENTYX [Concomitant]
     Active Substance: SECUKINUMAB
     Indication: Product used for unknown indication
     Dosage: UNK
     Route: 065
  7. METHOTREXATE SODIUM [Concomitant]
     Active Substance: METHOTREXATE SODIUM
     Indication: Axial spondyloarthritis
     Dosage: 15 MILLIGRAM, EVERY WEEK
     Dates: start: 20160812

REACTIONS (3)
  - Oesophageal stenosis [Not Recovered/Not Resolved]
  - Dysphagia [Not Recovered/Not Resolved]
  - Peptic ulcer [Not Recovered/Not Resolved]

NARRATIVE: CASE EVENT DATE: 20231222
